FAERS Safety Report 7973314-6 (Version None)
Quarter: 2011Q4

REPORT INFORMATION
  Report Type: 
  Country: None (occurrence: None)
  Receive Date: 20111213
  Receipt Date: 20111205
  Transmission Date: 20120403
  Serious: Yes (Other)
  Sender: FDA-Public Use
  Company Number: US-B.I. PHARMACEUTICALS,INC./RIDGEFIELD-2011-BP-27402BP

PATIENT
  Sex: Female

DRUGS (10)
  1. CO Q10 [Concomitant]
     Indication: SUPPLEMENTATION THERAPY
  2. VASOTEC [Concomitant]
     Indication: HYPERTENSION
     Dosage: 2.5 MG
     Route: 048
  3. ZETIA [Concomitant]
     Indication: BLOOD CHOLESTEROL INCREASED
     Dosage: 10 MG
     Route: 048
  4. CALCIUM [Concomitant]
     Indication: SUPPLEMENTATION THERAPY
  5. PREDNISONE TAB [Concomitant]
     Indication: POLYMYALGIA RHEUMATICA
  6. PRADAXA [Suspect]
     Indication: ATRIAL FIBRILLATION
     Dosage: 300 MG
     Route: 048
     Dates: start: 20110401
  7. CELEXA [Concomitant]
     Indication: DEPRESSION
     Dosage: 40 MG
     Route: 048
  8. METOPROLOL TARTRATE [Concomitant]
     Indication: HYPERTENSION
     Dosage: 50 MG
     Route: 048
  9. FISH OIL [Concomitant]
     Indication: SUPPLEMENTATION THERAPY
  10. MULTI-VITAMIN [Concomitant]
     Indication: SUPPLEMENTATION THERAPY

REACTIONS (7)
  - DYSPEPSIA [None]
  - TRANSIENT ISCHAEMIC ATTACK [None]
  - WHITE BLOOD CELL COUNT INCREASED [None]
  - VOMITING [None]
  - HYPERTENSION [None]
  - POLYMYALGIA RHEUMATICA [None]
  - BLOOD URINE PRESENT [None]
